FAERS Safety Report 6720238-8 (Version None)
Quarter: 2010Q2

REPORT INFORMATION
  Report Type: 
  Country: None (occurrence: None)
  Receive Date: 20100511
  Receipt Date: 20100428
  Transmission Date: 20101027
  Serious: Yes (Hospitalization)
  Sender: FDA-Public Use
  Company Number: PHHY2010FR28304

PATIENT
  Sex: Male

DRUGS (5)
  1. TEGRETOL [Suspect]
     Indication: AFFECTIVE DISORDER
     Dosage: UNK
     Dates: start: 20100222, end: 20100315
  2. DEROXAT [Suspect]
     Indication: AFFECTIVE DISORDER
     Dosage: 20 MG, DAILY
     Dates: start: 20100302, end: 20100316
  3. VALIUM [Suspect]
     Indication: AFFECTIVE DISORDER
     Dosage: 10 MG, BID
     Dates: start: 20100305, end: 20100310
  4. ZYPREXA [Suspect]
     Indication: AFFECTIVE DISORDER
     Dosage: UNK
     Dates: start: 20100216, end: 20100305
  5. IMOVANE [Suspect]
     Indication: SLEEP DISORDER
     Dosage: 3.75 MG, DAILY
     Dates: start: 20100226, end: 20100316

REACTIONS (12)
  - BUNDLE BRANCH BLOCK [None]
  - DERMATITIS EXFOLIATIVE [None]
  - DRUG RASH WITH EOSINOPHILIA AND SYSTEMIC SYMPTOMS [None]
  - ERYTHEMA [None]
  - EYELID OEDEMA [None]
  - HERPES VIRUS INFECTION [None]
  - LYMPHADENOPATHY [None]
  - NASOPHARYNGITIS [None]
  - RASH [None]
  - RASH MORBILLIFORM [None]
  - SKIN EXFOLIATION [None]
  - STAPHYLOCOCCAL IMPETIGO [None]
